FAERS Safety Report 4673199-X (Version None)
Quarter: 2005Q2

REPORT INFORMATION
  Report Type: 
  Country: None (occurrence: None)
  Receive Date: 20050525
  Receipt Date: 20040908
  Transmission Date: 20051028
  Serious: No
  Sender: FDA-Public Use
  Company Number: US-GLAXOSMITHKLINE-A0524905A

PATIENT
  Age: 76 Year
  Sex: Female

DRUGS (6)
  1. BACTROBAN [Suspect]
     Dosage: 1APP TWICE PER DAY
     Route: 061
     Dates: start: 20040903, end: 20040913
  2. FOSAMAX [Concomitant]
  3. ASPIRIN [Concomitant]
  4. CALCIUM GLUCONATE [Concomitant]
  5. VITAMINS [Concomitant]
  6. UNSPECIFIED MEDICATION [Concomitant]

REACTIONS (2)
  - DRUG INEFFECTIVE [None]
  - IRRITABILITY [None]
